FAERS Safety Report 17364477 (Version 2)
Quarter: 2022Q1

REPORT INFORMATION
  Report Type: Spontaneous
  Country: DK (occurrence: DK)
  Receive Date: 20200204
  Receipt Date: 20220317
  Transmission Date: 20220424
  Serious: Yes (Other)
  Sender: FDA-Public Use
  Company Number: DK-EMA-DD-20200117-SHUKLA_V-122532

PATIENT
  Age: 33 Year
  Sex: Male
  Weight: 90 kg

DRUGS (11)
  1. OLANZAPINE [Suspect]
     Active Substance: OLANZAPINE
     Indication: Product used for unknown indication
     Dosage: 1 DOSAGE FORM
     Route: 065
  2. RISPERDAL [Suspect]
     Active Substance: RISPERIDONE
     Indication: Product used for unknown indication
     Dosage: UNK
     Route: 065
     Dates: end: 2013
  3. CLOZAPINE [Suspect]
     Active Substance: CLOZAPINE
     Indication: Psychotic disorder
     Dosage: 350 MILLIGRAM
     Route: 048
  4. CLOZAPINE [Suspect]
     Active Substance: CLOZAPINE
     Dosage: 250 MILLIGRAM, ONCE A DAY
     Route: 065
     Dates: start: 20140215, end: 201709
  5. CLOZAPINE [Suspect]
     Active Substance: CLOZAPINE
     Dosage: 200 UNK
     Route: 065
     Dates: start: 20170914
  6. SEROQUEL [Suspect]
     Active Substance: QUETIAPINE FUMARATE
     Indication: Mental disorder
     Dosage: 500 MILLIGRAM
     Route: 048
     Dates: start: 20050310
  7. ZYPREXA [Suspect]
     Active Substance: OLANZAPINE
     Indication: Product used for unknown indication
     Dosage: UNK
     Route: 065
  8. ZELDOX [Suspect]
     Active Substance: ZIPRASIDONE
     Indication: Mental disorder
     Dosage: 20 MILLIGRAM
     Route: 048
     Dates: start: 2010, end: 2013
  9. ESCITALOPRAM [Concomitant]
     Active Substance: ESCITALOPRAM OXALATE
     Indication: Mood swings
     Dosage: UNK
     Route: 065
  10. DELEPSINE [Concomitant]
     Active Substance: VALPROATE SODIUM
     Indication: Mania
     Dosage: UNK, 2.5 MILLILTER MORNING, 4 ML EVENING
     Route: 048
  11. ABILIFY [Concomitant]
     Active Substance: ARIPIPRAZOLE
     Indication: Product used for unknown indication
     Dosage: UNK
     Route: 065
     Dates: start: 2014

REACTIONS (6)
  - Gender dysphoria [Unknown]
  - Semen volume decreased [Unknown]
  - Erectile dysfunction [Not Recovered/Not Resolved]
  - Homosexuality [Not Recovered/Not Resolved]
  - Sperm concentration decreased [Not Recovered/Not Resolved]
  - Feminisation acquired [Not Recovered/Not Resolved]
